FAERS Safety Report 8029798-0 (Version None)
Quarter: 2012Q1

REPORT INFORMATION
  Report Type: 
  Country: None (occurrence: None)
  Receive Date: 20120109
  Receipt Date: 20111228
  Transmission Date: 20120608
  Serious: Yes (Hospitalization, Other)
  Sender: FDA-Public Use
  Company Number: US-ELI_LILLY_AND_COMPANY-US201108001722

PATIENT
  Sex: Female

DRUGS (3)
  1. FORTEO [Suspect]
     Indication: OSTEOPOROSIS
     Dosage: 20 UG, QD
     Route: 065
     Dates: start: 20110101
  2. FORTEO [Suspect]
     Dosage: 20 UG, QD
     Route: 065
  3. FORTEO [Suspect]
     Dosage: 20 UG, QD
     Route: 065

REACTIONS (12)
  - ABDOMINAL PAIN UPPER [None]
  - GALLBLADDER DISORDER [None]
  - ROTATOR CUFF SYNDROME [None]
  - HEPATIC PAIN [None]
  - LABORATORY TEST ABNORMAL [None]
  - BLOOD CHOLESTEROL INCREASED [None]
  - LIVER FUNCTION TEST ABNORMAL [None]
  - PAIN IN EXTREMITY [None]
  - ABDOMINAL DISCOMFORT [None]
  - SLEEP DISORDER DUE TO A GENERAL MEDICAL CONDITION [None]
  - PROTEIN TOTAL INCREASED [None]
  - PROCEDURAL HAEMORRHAGE [None]
